FAERS Safety Report 10730620 (Version 2)
Quarter: 2015Q2

REPORT INFORMATION
  Report Type: Spontaneous
  Country: US (occurrence: US)
  Receive Date: 20150122
  Receipt Date: 20150604
  Transmission Date: 20150821
  Serious: No
  Sender: FDA-Public Use
  Company Number: US-009507513-1501USA000143

PATIENT
  Sex: Female

DRUGS (1)
  1. ASMANEX [Suspect]
     Active Substance: MOMETASONE FUROATE
     Dosage: 220 MICROGRAM, BID, ORAL INHALER
     Route: 055
     Dates: start: 20140403

REACTIONS (3)
  - No adverse event [Unknown]
  - Drug dispensing error [Unknown]
  - Product quality issue [Unknown]
